FAERS Safety Report 7027812-2 (Version None)
Quarter: 2010Q4

REPORT INFORMATION
  Report Type: 
  Country: None (occurrence: None)
  Receive Date: 20101005
  Receipt Date: 20100927
  Transmission Date: 20110411
  Serious: Yes (Hospitalization)
  Sender: FDA-Public Use
  Company Number: GB-EISAI INC.-E3810-04114-SPO-GB

PATIENT
  Age: 76 Year
  Sex: Female

DRUGS (1)
  1. PARIET (RABEPRAZOLE) [Suspect]
     Dosage: UNKNOWN
     Route: 048

REACTIONS (1)
  - PERITONITIS BACTERIAL [None]
